FAERS Safety Report 15095446 (Version 1)
Quarter: 2018Q3

REPORT INFORMATION
  Report Type: Spontaneous
  Country: AU (occurrence: AU)
  Receive Date: 20180702
  Receipt Date: 20180702
  Transmission Date: 20181010
  Serious: Yes (Death, Hospitalization, Other)
  Sender: FDA-Public Use
  Company Number: AU-ORION CORPORATION ORION PHARMA-TREX2018-1984

PATIENT
  Age: 65 Year
  Sex: Male
  Weight: 50 kg

DRUGS (2)
  1. METHOTREXATE (TRADE NAME UNKNOWN) [Suspect]
     Active Substance: METHOTREXATE
     Indication: RHEUMATOID ARTHRITIS
     Route: 065
     Dates: start: 20090417, end: 20090420
  2. CELEBREX [Concomitant]
     Active Substance: CELECOXIB
     Route: 065
     Dates: start: 20090417

REACTIONS (31)
  - Gastritis erosive [Not Recovered/Not Resolved]
  - Renal impairment [Unknown]
  - Toxicity to various agents [Fatal]
  - Back pain [Unknown]
  - Immunosuppression [Recovered/Resolved]
  - Pancytopenia [Unknown]
  - Urinary tract infection [Unknown]
  - Cardiomegaly [Unknown]
  - Hepatic function abnormal [Unknown]
  - Arteriosclerosis [Fatal]
  - Diarrhoea [Unknown]
  - Multiple organ dysfunction syndrome [Fatal]
  - Sepsis [Unknown]
  - Musculoskeletal stiffness [Unknown]
  - Feeling cold [Unknown]
  - Drug level increased [Unknown]
  - Coagulopathy [Unknown]
  - Vasculitis [Fatal]
  - Tuberculosis [Unknown]
  - Vomiting [Unknown]
  - Small intestinal obstruction [Unknown]
  - Gastrointestinal haemorrhage [Not Recovered/Not Resolved]
  - Pollakiuria [Unknown]
  - Nausea [Unknown]
  - Overdose [Unknown]
  - Stag horn calculus [Unknown]
  - Respiratory failure [Unknown]
  - Product prescribing issue [Unknown]
  - Abdominal pain upper [Unknown]
  - Mouth ulceration [Unknown]
  - Pyrexia [Unknown]

NARRATIVE: CASE EVENT DATE: 200904
